FAERS Safety Report 23548585 (Version 1)
Quarter: 2024Q1

REPORT INFORMATION
  Report Type: Spontaneous
  Country: US (occurrence: None)
  Receive Date: 20240220
  Receipt Date: 20240220
  Transmission Date: 20240409
  Serious: Yes (Other)
  Sender: FDA-Public Use
  Company Number: None

PATIENT
  Age: 39 Year

DRUGS (3)
  1. GAMMAGARD [Suspect]
     Active Substance: HUMAN IMMUNOGLOBULIN G
     Indication: Multiple sclerosis
     Dosage: OTHER FREQUENCY : Q4W;?
     Route: 042
  2. AMLODIPINE [Concomitant]
  3. PRENATAL VITAMIN [Concomitant]

REACTIONS (2)
  - Placenta praevia [None]
  - Maternal exposure during pregnancy [None]

NARRATIVE: CASE EVENT DATE: 20231221
